FAERS Safety Report 13960522 (Version 1)
Quarter: 2017Q3

REPORT INFORMATION
  Report Type: Spontaneous
  Country: CA (occurrence: CA)
  Receive Date: 20170912
  Receipt Date: 20170912
  Transmission Date: 20171128
  Serious: Yes (Death)
  Sender: FDA-Public Use
  Company Number: CA-ASTRAZENECA-2017SE91398

PATIENT
  Sex: Male

DRUGS (1)
  1. FORXIGA [Suspect]
     Active Substance: DAPAGLIFLOZIN
     Indication: TYPE 2 DIABETES MELLITUS
     Dosage: 10.0MG UNKNOWN
     Route: 048
     Dates: start: 201702

REACTIONS (6)
  - Foot amputation [Fatal]
  - Cardiac failure [Fatal]
  - Skin discolouration [Unknown]
  - Weight decreased [Unknown]
  - Pain in extremity [Fatal]
  - Renal failure [Fatal]

NARRATIVE: CASE EVENT DATE: 201707
